FAERS Safety Report 16606322 (Version 2)
Quarter: 2019Q3

REPORT INFORMATION
  Report Type: Report from Study
  Country: None (occurrence: FR)
  Receive Date: 20190721
  Receipt Date: 20190802
  Transmission Date: 20191004
  Serious: Yes (Death)
  Sender: FDA-Public Use
  Company Number: FR-ABBVIE-19K-056-2860928-00

PATIENT
  Age: 57 Year
  Sex: Male
  Weight: 70 kg

DRUGS (19)
  1. LAROXYL [Concomitant]
     Active Substance: AMITRIPTYLINE HYDROCHLORIDE
     Indication: PRODUCT USED FOR UNKNOWN INDICATION
     Dates: start: 20180726, end: 20190606
  2. MYCOSTER [Concomitant]
     Active Substance: CICLOPIROX\CICLOPIROX OLAMINE
     Indication: PRODUCT USED FOR UNKNOWN INDICATION
     Dates: start: 20190110, end: 20190606
  3. VOGALENE [Concomitant]
     Active Substance: METOPIMAZINE
     Indication: PRODUCT USED FOR UNKNOWN INDICATION
     Dates: start: 201902, end: 20190412
  4. PRIMPERAN [Concomitant]
     Active Substance: METOCLOPRAMIDE HYDROCHLORIDE
     Indication: PRODUCT USED FOR UNKNOWN INDICATION
     Dates: start: 201902, end: 20190412
  5. FUROSEMIDE. [Concomitant]
     Active Substance: FUROSEMIDE
     Indication: PRODUCT USED FOR UNKNOWN INDICATION
     Dates: start: 201904, end: 20190524
  6. DUPHALAC [Concomitant]
     Active Substance: LACTULOSE
     Indication: PRODUCT USED FOR UNKNOWN INDICATION
     Dates: start: 201904, end: 20190606
  7. PRINCI B [Concomitant]
     Indication: PRODUCT USED FOR UNKNOWN INDICATION
     Dates: start: 2019, end: 2019
  8. DAIVOBET [Concomitant]
     Active Substance: BETAMETHASONE DIPROPIONATE\CALCIPOTRIENE
     Indication: PRODUCT USED FOR UNKNOWN INDICATION
     Dates: start: 20180524, end: 20190606
  9. KALEORID [Concomitant]
     Active Substance: POTASSIUM CHLORIDE
     Indication: PRODUCT USED FOR UNKNOWN INDICATION
     Dates: start: 201904, end: 20190606
  10. PROPANOLOL [Concomitant]
     Active Substance: PROPRANOLOL HYDROCHLORIDE
     Indication: PRODUCT USED FOR UNKNOWN INDICATION
     Dates: start: 20180726, end: 20190606
  11. GUTRON [Concomitant]
     Active Substance: MIDODRINE
     Indication: PRODUCT USED FOR UNKNOWN INDICATION
     Dates: start: 201903, end: 20190606
  12. HUMIRA [Suspect]
     Active Substance: ADALIMUMAB
     Route: 058
     Dates: start: 20180719, end: 20190120
  13. STELARA [Concomitant]
     Active Substance: USTEKINUMAB
     Indication: PSORIASIS
     Route: 058
     Dates: start: 201902, end: 201903
  14. DEXERYL [Concomitant]
     Indication: PRODUCT USED FOR UNKNOWN INDICATION
     Dates: start: 20180425, end: 20190606
  15. SPIRONOLACTONE. [Concomitant]
     Active Substance: SPIRONOLACTONE
     Indication: PRODUCT USED FOR UNKNOWN INDICATION
     Dates: start: 201904, end: 20190524
  16. HUMIRA [Suspect]
     Active Substance: ADALIMUMAB
     Indication: PSORIASIS
     Route: 058
     Dates: start: 20180712, end: 20180719
  17. BISOPROLOL [Concomitant]
     Active Substance: BISOPROLOL
     Indication: PRODUCT USED FOR UNKNOWN INDICATION
     Dates: start: 20180708, end: 20180726
  18. STELARA [Concomitant]
     Active Substance: USTEKINUMAB
     Route: 058
     Dates: start: 201903, end: 20190606
  19. PANTOPRAZOLE [Concomitant]
     Active Substance: PANTOPRAZOLE
     Indication: PRODUCT USED FOR UNKNOWN INDICATION
     Dates: start: 2019, end: 2019

REACTIONS (6)
  - Cerebral haematoma [Fatal]
  - Anaemia [Fatal]
  - Subarachnoid haemorrhage [Fatal]
  - Hepatic failure [Fatal]
  - General physical health deterioration [Fatal]
  - Bacterial sepsis [Fatal]

NARRATIVE: CASE EVENT DATE: 20190601
